FAERS Safety Report 9837399 (Version 1)
Quarter: 2013Q4

REPORT INFORMATION
  Report Type: Spontaneous
  Country: US (occurrence: None)
  Receive Date: 20131205
  Receipt Date: 20131205
  Transmission Date: 20140711
  Serious: Yes (Other)
  Sender: FDA-Public Use
  Company Number: 163-POMAL-13093316

PATIENT
  Age: 69 Year
  Sex: Female

DRUGS (6)
  1. POMALYST [Suspect]
     Indication: PLASMA CELL MYELOMA
     Dosage: 4MG, 1 IN 1 D, PO
     Route: 048
     Dates: start: 20130511, end: 20130820
  2. ZOLPIDEM (ZOLPIDEM) [Concomitant]
  3. DEXAMETHASONE (DEXAMETHASONE) [Concomitant]
  4. CITALOPRAM (CITALOPRAM) [Concomitant]
  5. TRIAMTERENE/HCTZ (DYAZIDE) [Concomitant]
  6. LANSOPRAZOLE (LANSOPRAZOLE) [Concomitant]

REACTIONS (5)
  - Depression [None]
  - Malaise [None]
  - Anxiety [None]
  - Night sweats [None]
  - Neuropathy peripheral [None]
